FAERS Safety Report 9471675 (Version 1)
Quarter: 2013Q3

REPORT INFORMATION
  Report Type: Spontaneous
  Country: ES (occurrence: ES)
  Receive Date: 20130822
  Receipt Date: 20130822
  Transmission Date: 20140515
  Serious: Yes (Other)
  Sender: FDA-Public Use
  Company Number: ES-BAXTER-2013BAX033022

PATIENT
  Age: 28 Year
  Sex: Male

DRUGS (6)
  1. GENOXAL 1 G INYECTABLE [Suspect]
     Indication: ACUTE MYELOID LEUKAEMIA
     Route: 042
  2. ANTITHYMOCYTE GLOBULIN [Suspect]
     Indication: PROPHYLAXIS AGAINST GRAFT VERSUS HOST DISEASE
     Route: 065
  3. CYCLOSPORINE [Suspect]
     Indication: PROPHYLAXIS AGAINST GRAFT VERSUS HOST DISEASE
     Route: 065
  4. MYCOPHENOLATE MOFETIL [Suspect]
     Indication: PROPHYLAXIS AGAINST GRAFT VERSUS HOST DISEASE
     Route: 065
  5. PREDNISONE [Suspect]
     Indication: APLASIA PURE RED CELL
     Route: 042
  6. PREDNISONE [Suspect]
     Indication: AUTOIMMUNE HAEMOLYTIC ANAEMIA

REACTIONS (3)
  - Autoimmune haemolytic anaemia [Unknown]
  - Aplasia pure red cell [Unknown]
  - Cytomegalovirus infection [Unknown]
